FAERS Safety Report 12726677 (Version 1)
Quarter: 2016Q3

REPORT INFORMATION
  Report Type: Spontaneous
  Country: JP (occurrence: JP)
  Receive Date: 20160908
  Receipt Date: 20160908
  Transmission Date: 20161109
  Serious: Yes (Other)
  Sender: FDA-Public Use
  Company Number: JP-BAUSCH-BL-2016-021587

PATIENT
  Age: 57 Year
  Sex: Female

DRUGS (2)
  1. MIZORIBINE [Concomitant]
     Active Substance: MIZORIBINE
     Indication: SYSTEMIC LUPUS ERYTHEMATOSUS
  2. PREDNISOLONE. [Suspect]
     Active Substance: PREDNISOLONE
     Indication: SYSTEMIC LUPUS ERYTHEMATOSUS
     Route: 048

REACTIONS (4)
  - Fracture nonunion [Recovered/Resolved]
  - Tendon rupture [Recovered/Resolved]
  - Osteoporosis [Unknown]
  - Wrist fracture [Recovered/Resolved]
